FAERS Safety Report 15832669 (Version 1)
Quarter: 2018Q4

REPORT INFORMATION
  Report Type: Spontaneous
  Country: US (occurrence: US)
  Receive Date: 20181219
  Receipt Date: 20181219
  Transmission Date: 20190205
  Serious: No
  Sender: FDA-Public Use
  Company Number: None

PATIENT
  Age: 61 Year
  Sex: Female

DRUGS (1)
  1. FERUMOXYTOL [Suspect]
     Active Substance: FERUMOXYTOL NON-STOICHIOMETRIC MAGNETITE
     Indication: IRON DEFICIENCY
     Dates: start: 20180917, end: 20180917

REACTIONS (5)
  - Infusion related reaction [None]
  - Erythema [None]
  - Blood pressure increased [None]
  - Throat tightness [None]
  - Dizziness [None]

NARRATIVE: CASE EVENT DATE: 20180917
